FAERS Safety Report 4566545-9 (Version None)
Quarter: 2005Q1

REPORT INFORMATION
  Report Type: 
  Country: None (occurrence: None)
  Receive Date: 20050126
  Receipt Date: 20050126
  Transmission Date: 20050727
  Serious: Yes (Other)
  Sender: FDA-Public Use
  Company Number: None

PATIENT
  Sex: Female
  Weight: 59.4212 kg

DRUGS (1)
  1. FELODIPINE [Suspect]
     Indication: HYPERTENSION
     Dosage: 5 MG 2 PO QD
     Route: 048

REACTIONS (4)
  - FEELING ABNORMAL [None]
  - HEADACHE [None]
  - HOT FLUSH [None]
  - PHARMACEUTICAL PRODUCT COMPLAINT [None]
